FAERS Safety Report 15197124 (Version 1)
Quarter: 2018Q3

REPORT INFORMATION
  Report Type: Report from Study
  Country: ES (occurrence: ES)
  Receive Date: 20180725
  Receipt Date: 20180725
  Transmission Date: 20181010
  Serious: Yes (Hospitalization)
  Sender: FDA-Public Use
  Company Number: ES-TEVA-2018-ES-929821

PATIENT
  Age: 43 Year
  Sex: Male

DRUGS (4)
  1. MEROPENEM (7155A) [Suspect]
     Active Substance: MEROPENEM
     Indication: PNEUMONIA
     Route: 042
     Dates: start: 20140205, end: 20140218
  2. OSELTAMIVIR (2885A) [Suspect]
     Active Substance: OSELTAMIVIR
     Indication: INFLUENZA
     Route: 048
     Dates: start: 20140205, end: 20140218
  3. ESPIRONOLACTONA (326A) [Suspect]
     Active Substance: SPIRONOLACTONE
     Indication: PITUITARY-DEPENDENT CUSHING^S SYNDROME
     Route: 048
     Dates: start: 20140205, end: 20140228
  4. KETOCONAZOL (3882A) [Suspect]
     Active Substance: KETOCONAZOLE
     Indication: CUSHING^S SYNDROME
     Dosage: 300MG/8HORAS
     Route: 048
     Dates: start: 20140206, end: 20140223

REACTIONS (1)
  - Toxic epidermal necrolysis [Recovered/Resolved with Sequelae]

NARRATIVE: CASE EVENT DATE: 20140223
